FAERS Safety Report 11567567 (Version 1)
Quarter: 2015Q3

REPORT INFORMATION
  Report Type: Spontaneous
  Country: US (occurrence: US)
  Receive Date: 20150929
  Receipt Date: 20150929
  Transmission Date: 20151125
  Serious: No
  Sender: FDA-Public Use
  Company Number: US-009507513-1509USA013953

PATIENT
  Sex: Female

DRUGS (1)
  1. FOLLISTIM [Suspect]
     Active Substance: FOLLITROPIN
     Dosage: 225 IU/ONCE AT NIGHT, STRENGTH: 900U, ROUTE: INJECTION
     Dates: start: 20150924

REACTIONS (3)
  - Product quality issue [Unknown]
  - Poor quality drug administered [Unknown]
  - No adverse event [Unknown]

NARRATIVE: CASE EVENT DATE: 201509
